FAERS Safety Report 23899154 (Version 3)
Quarter: 2024Q2

REPORT INFORMATION
  Report Type: Spontaneous
  Country: JP (occurrence: JP)
  Receive Date: 20240526
  Receipt Date: 20240528
  Transmission Date: 20240715
  Serious: Yes (Hospitalization)
  Sender: FDA-Public Use
  Company Number: JP-BAYER-2024A075252

PATIENT
  Age: 8 Decade
  Sex: Female

DRUGS (2)
  1. XARELTO [Suspect]
     Active Substance: RIVAROXABAN
     Indication: Pulmonary embolism
     Route: 048
  2. XARELTO [Suspect]
     Active Substance: RIVAROXABAN
     Route: 048

REACTIONS (6)
  - Shock [Recovered/Resolved]
  - Mediastinal haematoma [Recovered/Resolved]
  - Haemothorax [Recovered/Resolved]
  - Intra-abdominal haematoma [Recovered/Resolved]
  - Aneurysm [Recovered/Resolved]
  - Aneurysm ruptured [Recovered/Resolved]
